FAERS Safety Report 6942294-4 (Version None)
Quarter: 2010Q3

REPORT INFORMATION
  Report Type: 
  Country: None (occurrence: None)
  Receive Date: 20100820
  Receipt Date: 20100809
  Transmission Date: 20110219
  Serious: Yes (Hospitalization, Disabling, Other)
  Sender: FDA-Public Use
  Company Number: OXER20100001

PATIENT
  Age: 40 Year
  Sex: Male

DRUGS (2)
  1. OXYCODONE ER (OXYCODONE) (TABLETS) [Suspect]
     Indication: BACK PAIN
     Dosage: 20 MG, BID, ORAL
     Route: 048
     Dates: start: 20040101
  2. OXYCODONE AND ACETAMINOPHEN [Suspect]
     Indication: BREAKTHROUGH PAIN
     Dosage: 2.5/325 MG, 2 TABLETS Q4-6H PRN, ORAL
     Route: 048
     Dates: start: 20040101

REACTIONS (5)
  - AFFECTIVE DISORDER [None]
  - DEPRESSIVE SYMPTOM [None]
  - DRUG DEPENDENCE [None]
  - HYPERAESTHESIA [None]
  - SUBSTANCE ABUSE [None]
